FAERS Safety Report 4774523-X (Version None)
Quarter: 2005Q3

REPORT INFORMATION
  Report Type: 
  Country: None (occurrence: None)
  Receive Date: 20050919
  Receipt Date: 20050919
  Transmission Date: 20060218
  Serious: Yes (Hospitalization)
  Sender: FDA-Public Use
  Company Number: None

PATIENT
  Age: 66 Year
  Sex: Male
  Weight: 108.8633 kg

DRUGS (8)
  1. BIAXIN [Suspect]
     Indication: MULTIPLE MYELOMA
     Dosage: 250MG BID PO
     Route: 048
     Dates: start: 20050429, end: 20050913
  2. REVLIMID [Suspect]
     Indication: MULTIPLE MYELOMA
     Dosage: 25 MG PO
     Route: 048
     Dates: start: 20050429, end: 20050913
  3. DECADRON SRC [Suspect]
     Indication: MULTIPLE MYELOMA
     Dosage: 20MG PO
     Route: 048
     Dates: start: 20050429, end: 20050913
  4. LEVOTHROID [Concomitant]
  5. G-OX 400 [Concomitant]
  6. TOPROL-XL [Concomitant]
  7. PROTONIX [Concomitant]
  8. POTASSIUM CHLORIDE [Concomitant]

REACTIONS (3)
  - CONFUSIONAL STATE [None]
  - DEHYDRATION [None]
  - HYPONATRAEMIA [None]
